APPROVED DRUG PRODUCT: DIAZEPAM
Active Ingredient: DIAZEPAM
Strength: 5MG
Dosage Form/Route: TABLET;ORAL
Application: A070357 | Product #001
Applicant: ROXANE LABORATORIES INC
Approved: Jun 17, 1986 | RLD: No | RS: No | Type: DISCN